FAERS Safety Report 8925219 (Version 2)
Quarter: 2013Q3

REPORT INFORMATION
  Report Type: Spontaneous
  Country: US (occurrence: US)
  Receive Date: 20121126
  Receipt Date: 20130730
  Transmission Date: 20140515
  Serious: Yes (Hospitalization, Other)
  Sender: FDA-Public Use
  Company Number: US-BAYER-2012-121207

PATIENT
  Age: 36 Year
  Sex: Female
  Weight: 84.81 kg

DRUGS (8)
  1. OCELLA [Suspect]
     Dosage: UNK
     Dates: start: 2008, end: 2011
  2. OCELLA [Suspect]
     Dosage: UNK
     Dates: start: 2009, end: 2011
  3. LISINOPRIL [Concomitant]
     Indication: GESTATIONAL HYPERTENSION
     Dosage: UNK
     Dates: start: 2007
  4. ALBUTEROL [Concomitant]
  5. PROPRANOLOL [Concomitant]
  6. IBUPROFEN [Concomitant]
  7. SIMVASTATIN [Concomitant]
  8. TYLENOL [PARACETAMOL] [Concomitant]

REACTIONS (12)
  - Deep vein thrombosis [None]
  - Injury [None]
  - General physical health deterioration [None]
  - Cerebrovascular accident [None]
  - Pain [None]
  - Myocardial infarction [None]
  - Emotional distress [None]
  - Anxiety [None]
  - Pain [None]
  - Suicidal ideation [None]
  - Depression [None]
  - Amnesia [None]
